FAERS Safety Report 10055872 (Version 1)
Quarter: 2014Q2

REPORT INFORMATION
  Report Type: Spontaneous
  Country: CA (occurrence: None)
  Receive Date: 20140401
  Receipt Date: 20140401
  Transmission Date: 20141212
  Serious: Yes (Other)
  Sender: FDA-Public Use
  Company Number: 2014AP002288

PATIENT
  Age: 22 Year
  Sex: Female

DRUGS (2)
  1. DEFERIPRONE [Suspect]
     Indication: THALASSAEMIA BETA
  2. DEFEROXAMINE [Concomitant]

REACTIONS (1)
  - Agranulocytosis [None]
